FAERS Safety Report 6103031-9 (Version None)
Quarter: 2009Q1

REPORT INFORMATION
  Report Type: 
  Country: None (occurrence: None)
  Receive Date: 20090305
  Receipt Date: 20090304
  Transmission Date: 20090719
  Serious: Yes (Other)
  Sender: FDA-Public Use
  Company Number: PHHO2007DK14761

PATIENT
  Sex: Male
  Weight: 45 kg

DRUGS (8)
  1. LOTREL [Suspect]
     Indication: HYPERTENSION
     Dosage: LEVEL 1
     Route: 048
     Dates: start: 20050223
  2. LOTREL [Suspect]
     Dosage: LEVEL 3
     Route: 048
     Dates: end: 20070825
  3. CARDURA [Concomitant]
     Indication: HYPERTENSION
     Dosage: 4 MG, UNK
     Route: 048
     Dates: start: 20050824
  4. DIMITONE [Concomitant]
     Dosage: UNK, UNK
     Dates: start: 20050223
  5. FURIX [Concomitant]
     Indication: HYPERTENSION
     Dosage: UNK, UNK
     Dates: start: 20051124
  6. MAGNYL [Concomitant]
     Indication: THROMBOSIS PROPHYLAXIS
     Dosage: 75 MG, UNK
     Dates: start: 20050223
  7. ZARATOR [Concomitant]
     Indication: HYPERLIPIDAEMIA
     Dosage: 10 MG, UNK
     Dates: start: 20050223
  8. LANZOR [Concomitant]
     Dosage: 30 MG, UNK
     Dates: start: 20070330

REACTIONS (2)
  - BLOOD CREATININE INCREASED [None]
  - RENAL IMPAIRMENT [None]
